FAERS Safety Report 17186759 (Version 3)
Quarter: 2020Q1

REPORT INFORMATION
  Report Type: Report from Study
  Country: US (occurrence: US)
  Receive Date: 20191220
  Receipt Date: 20200203
  Transmission Date: 20200409
  Serious: Yes (Hospitalization)
  Sender: FDA-Public Use
  Company Number: US-PFIZER INC-2019533771

PATIENT
  Age: 48 Year
  Sex: Female
  Weight: 93 kg

DRUGS (14)
  1. DAUNORUBICIN [Suspect]
     Active Substance: DAUNORUBICIN
     Indication: ACUTE MYELOID LEUKAEMIA
     Dosage: INDUCTION, SOLUTION, 130 MG, DAILY BY CONTINUOUS INFUSION
     Route: 041
     Dates: start: 20191018, end: 20191020
  2. PLACEBO [Suspect]
     Active Substance: UNSPECIFIED INGREDIENT
     Indication: ACUTE MYELOID LEUKAEMIA
     Dosage: ONCE DAILY CONTINUOUS
     Route: 048
     Dates: start: 20191018, end: 20191128
  3. VANCOMYCIN [Concomitant]
     Active Substance: VANCOMYCIN
     Indication: ANTIBIOTIC PROPHYLAXIS
     Dosage: 1000 MG, 2X/DAY (EVERY 12 HOURS)
     Route: 042
     Dates: start: 20191203, end: 20191204
  4. LORAZEPAM. [Concomitant]
     Active Substance: LORAZEPAM
     Indication: ANXIETY
     Dosage: 0.5 MG, EVERY 6 HOURS AS NEEDED
     Route: 042
     Dates: start: 20191205, end: 20191216
  5. FILGRASTIM SNDZ [Concomitant]
     Indication: NEUTROPENIA
     Dosage: 480 UG, DAILY
     Route: 058
     Dates: start: 20191206, end: 20191216
  6. PIPERACILLIN/TAZOBACTAM [Concomitant]
     Active Substance: PIPERACILLIN SODIUM\TAZOBACTAM SODIUM
     Indication: PROPHYLAXIS
     Dosage: 4.5 G, 4X/DAY (EVERY 6 HOURS OVER 30 MINUTES)
     Route: 042
     Dates: start: 20191208, end: 20191209
  7. DAUNORUBICIN [Suspect]
     Active Substance: DAUNORUBICIN
     Dosage: INDUCTION CYCLE 2, 130 MG, DAILY BY CONTINUOUS INFUSION
     Route: 042
     Dates: start: 20191104, end: 20191105
  8. ZARXIO [Concomitant]
     Active Substance: FILGRASTIM-SNDZ
     Indication: PANCYTOPENIA
     Dosage: 480 UG, 1X/DAY (EVERY EVENING)
     Route: 058
     Dates: start: 20191126, end: 20191202
  9. CYTARABINE. [Suspect]
     Active Substance: CYTARABINE
     Indication: ACUTE MYELOID LEUKAEMIA
     Dosage: 220 MG, DAILY BY CONTINUOUS INFUSION, INDUCTION
     Route: 041
     Dates: start: 20191018, end: 20191026
  10. CYTARABINE. [Suspect]
     Active Substance: CYTARABINE
     Dosage: 220 MG, DAILY BY INFUSION (CONTINUOUS), INDUCTION CYCLE 2
     Route: 042
     Dates: start: 20191104, end: 20191109
  11. MEGLUMINE GADOTERATE [Concomitant]
     Active Substance: GADOTERATE MEGLUMINE
     Indication: COMPUTERISED TOMOGRAM
     Dosage: 0.5 MMOL/ML, ONCE
     Route: 042
     Dates: start: 20191206, end: 20191206
  12. DRONABINOL. [Concomitant]
     Active Substance: DRONABINOL
     Indication: NAUSEA
     Dosage: 2.5 MG, 2X/DAY
     Route: 048
     Dates: start: 20191208, end: 20191216
  13. VANCOMYCIN [Concomitant]
     Active Substance: VANCOMYCIN
     Indication: FEBRILE NEUTROPENIA
     Dosage: 1500 MG, EVERY 12 HOURS OVER 120MINUTES
     Route: 042
     Dates: start: 20191201, end: 20191202
  14. MEROPENEM. [Concomitant]
     Active Substance: MEROPENEM
     Indication: CELLULITIS
     Dosage: 2 G, 3X/DAY (EVERY 8 HOURS)
     Route: 042
     Dates: start: 20191201, end: 20191202

REACTIONS (1)
  - Hypotension [Recovered/Resolved]

NARRATIVE: CASE EVENT DATE: 20191209
